FAERS Safety Report 5008356-6 (Version None)
Quarter: 2006Q2

REPORT INFORMATION
  Report Type: 
  Country: None (occurrence: None)
  Receive Date: 20060404
  Receipt Date: 20060131
  Transmission Date: 20061013
  Serious: No
  Sender: FDA-Public Use
  Company Number: US200602000145

PATIENT
  Sex: Female

DRUGS (4)
  1. CYMBALTA [Suspect]
     Dosage: 30 MG, DAILY (1/D), ORAL
     Route: 048
     Dates: start: 20050101
  2. SYNTHROID [Concomitant]
  3. ESTROGENS SOL/INJ [Concomitant]
  4. PROGESTERONE [Concomitant]

REACTIONS (9)
  - COLD SWEAT [None]
  - CRYING [None]
  - DIZZINESS [None]
  - EMOTIONAL DISTRESS [None]
  - NAUSEA [None]
  - PANIC ATTACK [None]
  - THINKING ABNORMAL [None]
  - VERTIGO POSITIONAL [None]
  - VISUAL FIELD DEFECT [None]
